FAERS Safety Report 11974966 (Version 1)
Quarter: 2016Q1

REPORT INFORMATION
  Report Type: Report from Study
  Country: US (occurrence: US)
  Receive Date: 20160128
  Receipt Date: 20160128
  Transmission Date: 20160526
  Serious: No
  Sender: FDA-Public Use
  Company Number: US-ABBVIE-15K-163-1396924-00

PATIENT
  Sex: Female

DRUGS (2)
  1. HUMIRA [Suspect]
     Active Substance: ADALIMUMAB
     Indication: CROHN^S DISEASE
     Route: 065
     Dates: start: 20130709, end: 201412
  2. HUMIRA [Suspect]
     Active Substance: ADALIMUMAB
     Route: 065
     Dates: start: 201501

REACTIONS (11)
  - Injection site erythema [Recovered/Resolved]
  - Injection site swelling [Recovered/Resolved]
  - Dizziness [Unknown]
  - Haemoglobin decreased [Not Recovered/Not Resolved]
  - Palpitations [Unknown]
  - Urinary tract infection [Unknown]
  - Drug ineffective [Unknown]
  - Injection site rash [Recovered/Resolved]
  - Injection site pain [Recovered/Resolved]
  - Drug specific antibody present [Unknown]
  - Tachycardia [Not Recovered/Not Resolved]

NARRATIVE: CASE EVENT DATE: 2015
